FAERS Safety Report 8272401-5 (Version None)
Quarter: 2012Q2

REPORT INFORMATION
  Report Type: 
  Country: None (occurrence: None)
  Receive Date: 20120410
  Receipt Date: 20120403
  Transmission Date: 20120825
  Serious: Yes (Other)
  Sender: FDA-Public Use
  Company Number: CHPA2012US004123

PATIENT
  Sex: Female

DRUGS (1)
  1. EXCEDRIN (MIGRAINE) [Suspect]
     Indication: MIGRAINE
     Dosage: 2 DF, PRN
     Route: 048

REACTIONS (13)
  - DYSPEPSIA [None]
  - NAUSEA [None]
  - DEPRESSION [None]
  - HYPERTENSION [None]
  - THYROID DISORDER [None]
  - ARTHRALGIA [None]
  - FEELING HOT [None]
  - DIARRHOEA [None]
  - VOMITING [None]
  - NERVE INJURY [None]
  - ABDOMINAL DISCOMFORT [None]
  - CHILLS [None]
  - BACK PAIN [None]
